FAERS Safety Report 7241801-4 (Version None)
Quarter: 2011Q1

REPORT INFORMATION
  Report Type: 
  Country: None (occurrence: None)
  Receive Date: 20110124
  Receipt Date: 20110113
  Transmission Date: 20110831
  Serious: Yes (Hospitalization, Disabling)
  Sender: FDA-Public Use
  Company Number: BR-ASTRAZENECA-2011SE02549

PATIENT
  Age: 70 Year
  Sex: Male
  Weight: 71 kg

DRUGS (1)
  1. ATACAND HCT [Suspect]
     Indication: HYPERTENSION
     Dosage: 16/12.5 MG
     Route: 048
     Dates: start: 20090101

REACTIONS (3)
  - PNEUMONIA [None]
  - RENAL FAILURE [None]
  - CEREBROVASCULAR ACCIDENT [None]
